FAERS Safety Report 15164127 (Version 1)
Quarter: 2018Q3

REPORT INFORMATION
  Report Type: Spontaneous
  Country: US (occurrence: US)
  Receive Date: 20180719
  Receipt Date: 20180719
  Transmission Date: 20181010
  Serious: No
  Sender: FDA-Public Use
  Company Number: US-STRIDES ARCOLAB LIMITED-2017SP010898

PATIENT

DRUGS (5)
  1. SIROLIMUS. [Concomitant]
     Active Substance: SIROLIMUS
     Dosage: 4MG DAILY UNTIL DAY +100
     Route: 065
  2. MYCOPHENOLATE MOFETIL. [Suspect]
     Active Substance: MYCOPHENOLATE MOFETIL
     Indication: PROPHYLAXIS AGAINST GRAFT VERSUS HOST DISEASE
     Dosage: 1.5 G, BID, BETWEEN DAYS ?3 AND +30
     Route: 042
  3. SIROLIMUS. [Concomitant]
     Active Substance: SIROLIMUS
     Indication: PROPHYLAXIS AGAINST GRAFT VERSUS HOST DISEASE
     Dosage: 8?12 MG, QD ON DAY ?3
     Route: 048
  4. SIROLIMUS. [Concomitant]
     Active Substance: SIROLIMUS
     Dosage: TAPERING OF THE DOSE BY DAY +180
     Route: 065
  5. MYCOPHENOLATE MOFETIL. [Suspect]
     Active Substance: MYCOPHENOLATE MOFETIL
     Dosage: 1.5 G, BID, BETWEEN DAYS ?3 AND +30
     Route: 048

REACTIONS (1)
  - Off label use [Unknown]
